FAERS Safety Report 23955678 (Version 1)
Quarter: 2024Q2

REPORT INFORMATION
  Report Type: Report from Study
  Country: US (occurrence: US)
  Receive Date: 20240610
  Receipt Date: 20240610
  Transmission Date: 20240716
  Serious: Yes (Other)
  Sender: FDA-Public Use
  Company Number: US-JNJFOC-20240607376

PATIENT
  Age: 58 Year
  Sex: Male
  Weight: 105 kg

DRUGS (7)
  1. TREMFYA [Suspect]
     Active Substance: GUSELKUMAB
     Indication: Psoriasis
     Route: 058
     Dates: start: 20240426
  2. ACETAMINOPHEN\HYDROCODONE [Concomitant]
     Active Substance: ACETAMINOPHEN\HYDROCODONE
     Dosage: 10-325
  3. LISINOPRIL [Concomitant]
     Active Substance: LISINOPRIL
  4. ALPRAZOLAM [Concomitant]
     Active Substance: ALPRAZOLAM
  5. TRIAMCINOLONE ACETONIDE [Concomitant]
     Active Substance: TRIAMCINOLONE ACETONIDE
  6. IBUPROFEN [Concomitant]
     Active Substance: IBUPROFEN
  7. ELIQUIS [Concomitant]
     Active Substance: APIXABAN

REACTIONS (1)
  - Pneumonia [Recovering/Resolving]

NARRATIVE: CASE EVENT DATE: 20240501
